FAERS Safety Report 8170394-2 (Version None)
Quarter: 2012Q1

REPORT INFORMATION
  Report Type: 
  Country: None (occurrence: None)
  Receive Date: 20120228
  Receipt Date: 20120217
  Transmission Date: 20120608
  Serious: Yes (Hospitalization)
  Sender: FDA-Public Use
  Company Number: US-BAYER-2011-078946

PATIENT
  Age: 46 Year
  Sex: Female
  Weight: 97.052 kg

DRUGS (6)
  1. YASMIN [Suspect]
     Indication: CONTRACEPTION
  2. NAPROSYN [Concomitant]
     Indication: MIGRAINE
     Dosage: UNK
     Dates: start: 20100101
  3. DARVOCET [Concomitant]
     Indication: MIGRAINE
     Dosage: UNK
     Dates: start: 20100101, end: 20100101
  4. MAXALT [Concomitant]
     Indication: MIGRAINE
     Dosage: UNK
     Dates: start: 20100101
  5. YASMIN [Suspect]
     Indication: POLYCYSTIC OVARIES
     Dosage: UNK
     Route: 048
     Dates: start: 20040101, end: 20100101
  6. YASMIN [Suspect]

REACTIONS (1)
  - CHOLECYSTECTOMY [None]
